FAERS Safety Report 23032157 (Version 1)
Quarter: 2023Q4

REPORT INFORMATION
  Report Type: Spontaneous
  Country: US (occurrence: None)
  Receive Date: 20231004
  Receipt Date: 20231004
  Transmission Date: 20240109
  Serious: Yes (Hospitalization)
  Sender: FDA-Public Use
  Company Number: None

PATIENT
  Age: 42 Year
  Sex: Female

DRUGS (1)
  1. AMBRISENTAN [Suspect]
     Active Substance: AMBRISENTAN
     Indication: Pulmonary hypertension
     Dosage: FREQUENCY : DAILY;?
     Route: 048
     Dates: start: 20191010

REACTIONS (8)
  - Dyspnoea [None]
  - Oxygen saturation decreased [None]
  - Dyspnoea exertional [None]
  - Orthopnoea [None]
  - Peripheral swelling [None]
  - Condition aggravated [None]
  - Cardiac failure [None]
  - Pulmonary hypertension [None]

NARRATIVE: CASE EVENT DATE: 20231003
